FAERS Safety Report 21488275 (Version 1)
Quarter: 2022Q4

REPORT INFORMATION
  Report Type: Spontaneous
  Country: US (occurrence: US)
  Receive Date: 20221020
  Receipt Date: 20221020
  Transmission Date: 20230112
  Serious: No
  Sender: FDA-Public Use
  Company Number: US-CIPLA LTD.-2022US02077

PATIENT
  Sex: Male

DRUGS (1)
  1. GABAPENTIN [Suspect]
     Active Substance: GABAPENTIN
     Indication: Nerve injury
     Dosage: 300 MILLIGRAM, QD
     Route: 048
     Dates: start: 20220325

REACTIONS (6)
  - Wrong technique in product usage process [Not Recovered/Not Resolved]
  - Product prescribing issue [Unknown]
  - Product use complaint [Unknown]
  - Product packaging quantity issue [Unknown]
  - Off label use [Unknown]
  - Product use in unapproved indication [Unknown]

NARRATIVE: CASE EVENT DATE: 20220325
